FAERS Safety Report 5141720-3 (Version None)
Quarter: 2006Q4

REPORT INFORMATION
  Report Type: 
  Country: None (occurrence: None)
  Receive Date: 20061026
  Receipt Date: 20061006
  Transmission Date: 20070319
  Serious: Yes (Hospitalization)
  Sender: FDA-Public Use
  Company Number: RB-4182-2006

PATIENT
  Age: 22 Month
  Sex: Female
  Weight: 11 kg

DRUGS (2)
  1. SUBOXONE [Suspect]
     Indication: ACCIDENTAL DRUG INTAKE BY CHILD
  2. NALOXONE [Concomitant]

REACTIONS (6)
  - ACCIDENTAL DRUG INTAKE BY CHILD [None]
  - DEPRESSED LEVEL OF CONSCIOUSNESS [None]
  - HEART RATE INCREASED [None]
  - LETHARGY [None]
  - MIOSIS [None]
  - SOMNOLENCE [None]
